FAERS Safety Report 25340066 (Version 7)
Quarter: 2025Q4

REPORT INFORMATION
  Report Type: Spontaneous
  Country: JP (occurrence: JP)
  Receive Date: 20250521
  Receipt Date: 20251217
  Transmission Date: 20260117
  Serious: Yes (Hospitalization, Other)
  Sender: GILEAD
  Company Number: JP-GILEAD-2025-0713007

PATIENT
  Age: 62 Year
  Sex: Female
  Weight: 57.5 kg

DRUGS (7)
  1. TRODELVY [Suspect]
     Active Substance: SACITUZUMAB GOVITECAN-HZIY
     Indication: Triple negative breast cancer
     Dosage: 560 MG
     Route: 041
     Dates: start: 20250408
  2. TRODELVY [Suspect]
     Active Substance: SACITUZUMAB GOVITECAN-HZIY
     Dosage: 420 MG
     Route: 041
     Dates: start: 20250520
  3. DICLOFENAC SODIUM [Suspect]
     Active Substance: DICLOFENAC SODIUM
     Indication: Lumbar spinal stenosis
     Dosage: FOR PAIN: 50 MG, TWICE
     Route: 054
  4. KALLIDINOGENASE [Concomitant]
     Active Substance: KALLIDINOGENASE
     Indication: Sudden hearing loss
     Dosage: 25 MG, TID
     Route: 048
  5. LIMAPROST [Concomitant]
     Active Substance: LIMAPROST
     Indication: Lumbar spinal stenosis
     Dosage: 5 UG, BID
     Route: 048
  6. METHYLCOBALAMIN [Concomitant]
     Active Substance: METHYLCOBALAMIN
     Indication: Lumbar spinal stenosis
     Dosage: 500 UG, TID
     Route: 048
  7. ADETPHOS [Concomitant]
     Active Substance: ADENOSINE TRIPHOSPHATE
     Indication: Sudden hearing loss
     Dosage: 1 G, TID
     Route: 048

REACTIONS (6)
  - Diverticulum intestinal haemorrhagic [Recovered/Resolved]
  - Diarrhoea [Recovering/Resolving]
  - Rectal tenesmus [Recovered/Resolved]
  - Vomiting [Recovered/Resolved]
  - Constipation [Recovered/Resolved]
  - Nausea [Recovered/Resolved]

NARRATIVE: CASE EVENT DATE: 20250410
